FAERS Safety Report 8122165-0 (Version None)
Quarter: 2012Q1

REPORT INFORMATION
  Report Type: 
  Country: None (occurrence: None)
  Receive Date: 20120208
  Receipt Date: 20120127
  Transmission Date: 20120608
  Serious: Yes (Hospitalization)
  Sender: FDA-Public Use
  Company Number: DE-ELI_LILLY_AND_COMPANY-DE201201008739

PATIENT
  Age: 74 Year
  Sex: Female

DRUGS (5)
  1. FORTEO [Suspect]
     Indication: OSTEOPOROSIS
     Dosage: UNK, QD
     Route: 058
     Dates: start: 20110420
  2. ASPIRIN [Concomitant]
     Dosage: UNK, QD
  3. FELODIPINE [Concomitant]
     Dosage: 5 MG, EACH MORNING
  4. PULMICORT-100 [Concomitant]
     Dosage: UNK, EACH MORNING
  5. SIMVASTATIN [Concomitant]
     Dosage: UNK, EACH EVENING

REACTIONS (1)
  - NOROVIRUS TEST POSITIVE [None]
